FAERS Safety Report 19933138 (Version 1)
Quarter: 2021Q4

REPORT INFORMATION
  Report Type: Report from Study
  Country: US (occurrence: US)
  Receive Date: 20211008
  Receipt Date: 20211008
  Transmission Date: 20220303
  Serious: Yes (Death, Other)
  Sender: FDA-Public Use
  Company Number: US-GLAXOSMITHKLINE-US2021AMR043046

PATIENT
  Sex: Female
  Weight: 71.21 kg

DRUGS (1)
  1. BELANTAMAB MAFODOTIN [Suspect]
     Active Substance: BELANTAMAB MAFODOTIN
     Indication: Plasma cell myeloma
     Dosage: 2.5 MG/KG, Z (30 MIN EVERY 3 WEEK)
     Route: 042
     Dates: start: 20210127, end: 20210215

REACTIONS (4)
  - Plasma cell myeloma [Fatal]
  - Disease progression [Unknown]
  - Blood creatinine increased [Unknown]
  - Drug ineffective [Unknown]
